FAERS Safety Report 23593231 (Version 1)
Quarter: 2024Q1

REPORT INFORMATION
  Report Type: Spontaneous
  Country: FR (occurrence: FR)
  Receive Date: 20240304
  Receipt Date: 20240304
  Transmission Date: 20240410
  Serious: Yes (Hospitalization)
  Sender: FDA-Public Use
  Company Number: None

PATIENT
  Age: 61 Year
  Sex: Male
  Weight: 64 kg

DRUGS (19)
  1. CARBOPLATIN [Suspect]
     Active Substance: CARBOPLATIN
     Indication: Non-small cell lung cancer
     Dosage: 1 DF, EVERY 3 WEEKS
     Route: 042
     Dates: start: 20230912
  2. ALIMTA [Suspect]
     Active Substance: PEMETREXED DISODIUM
     Indication: Non-small cell lung cancer
     Dosage: 1 DF, EVERY 3 WEEKS (500 MG/M2 BODY SURFACE AREA) OVER APPROXIMATELY 10 MINUTES
     Route: 042
     Dates: start: 20230912, end: 20231031
  3. KEYTRUDA [Suspect]
     Active Substance: PEMBROLIZUMAB
     Indication: Non-small cell lung cancer
     Dosage: 1 DF, EVERY 3 WEEKS
     Route: 042
     Dates: start: 20230912
  4. METOCLOPRAMIDE [Concomitant]
     Active Substance: METOCLOPRAMIDE
  5. AKYNZEO (NETUPITANT\PALONOSETRON) [Concomitant]
     Active Substance: NETUPITANT\PALONOSETRON
  6. PYRIDOXINE [Concomitant]
     Active Substance: PYRIDOXINE
  7. ZALDIAR [Concomitant]
     Active Substance: ACETAMINOPHEN\TRAMADOL HYDROCHLORIDE
  8. LANSOPRAZOLE [Concomitant]
     Active Substance: LANSOPRAZOLE
  9. AMPHOTERICIN B [Concomitant]
     Active Substance: AMPHOTERICIN B
  10. OXAZEPAM [Concomitant]
     Active Substance: OXAZEPAM
  11. ZOPICLONE [Concomitant]
     Active Substance: ZOPICLONE
  12. IRBESARTAN [Concomitant]
     Active Substance: IRBESARTAN
  13. TOBRAMYCIN [Concomitant]
     Active Substance: TOBRAMYCIN
  14. THIAMINE [Concomitant]
     Active Substance: THIAMINE
  15. PHLOROGLUCINOL [Concomitant]
     Active Substance: PHLOROGLUCINOL
  16. FUNGIZONE [Concomitant]
     Active Substance: AMPHOTERICIN B
  17. OXYCODONE [Concomitant]
     Active Substance: OXYCODONE\OXYCODONE HYDROCHLORIDE
  18. FENTANYL [Concomitant]
     Active Substance: FENTANYL\FENTANYL CITRATE
  19. FOLIC ACID [Concomitant]
     Active Substance: FOLIC ACID

REACTIONS (2)
  - Mucosal inflammation [Recovering/Resolving]
  - Stevens-Johnson syndrome [Recovering/Resolving]

NARRATIVE: CASE EVENT DATE: 20231115
